FAERS Safety Report 4453987-5 (Version None)
Quarter: 2004Q3

REPORT INFORMATION
  Report Type: 
  Country: None (occurrence: None)
  Receive Date: 20040920
  Receipt Date: 20040728
  Transmission Date: 20050211
  Serious: Yes (Disabling)
  Sender: FDA-Public Use
  Company Number: DE-GLAXOSMITHKLINE-D0044384A

PATIENT
  Sex: Male

DRUGS (1)
  1. VIANI MITE [Suspect]
     Indication: ASTHMA
     Dosage: 1PUFF TWICE PER DAY
     Route: 055
     Dates: start: 19990501

REACTIONS (3)
  - DENTAL CARIES [None]
  - ENAMEL ANOMALY [None]
  - TOOTH DISORDER [None]
